FAERS Safety Report 6894608-1 (Version None)
Quarter: 2010Q3

REPORT INFORMATION
  Report Type: 
  Country: None (occurrence: None)
  Receive Date: 20100802
  Receipt Date: 20100721
  Transmission Date: 20110219
  Serious: Yes (Hospitalization)
  Sender: FDA-Public Use
  Company Number: PHHO2009DE12181

PATIENT
  Sex: Female
  Weight: 59 kg

DRUGS (8)
  1. TASIGNA [Suspect]
     Indication: ACUTE MYELOID LEUKAEMIA
     Dosage: 200 MG, QD
     Route: 048
     Dates: start: 20090721, end: 20090805
  2. TASIGNA [Suspect]
     Dosage: NO TREATMENT
     Dates: start: 20090806, end: 20090813
  3. TASIGNA [Suspect]
     Dosage: 200 MG, QD
     Route: 048
     Dates: start: 20090814, end: 20090819
  4. AFINITOR [Suspect]
     Indication: ACUTE MYELOID LEUKAEMIA
     Dosage: 5 MG, QD
     Route: 048
     Dates: start: 20090728, end: 20090804
  5. AFINITOR [Suspect]
     Dosage: NO TREATMENT
     Dates: start: 20090805, end: 20090813
  6. AFINITOR [Suspect]
     Dosage: 5 MG, QD
     Route: 048
     Dates: start: 20090814
  7. PANTOPRAZOLE [Concomitant]
  8. ACETYLCYSTEINE [Concomitant]

REACTIONS (5)
  - CLOSTRIDIUM DIFFICILE COLITIS [None]
  - DIARRHOEA [None]
  - MALIGNANT NEOPLASM PROGRESSION [None]
  - NEUTROPENIA [None]
  - PYREXIA [None]
